FAERS Safety Report 7678128-2 (Version None)
Quarter: 2011Q3

REPORT INFORMATION
  Report Type: 
  Country: None (occurrence: None)
  Receive Date: 20110811
  Receipt Date: 20110809
  Transmission Date: 20111222
  Serious: Yes (Hospitalization, Congenital Anomaly)
  Sender: FDA-Public Use
  Company Number: FR-GILEAD-2010-0030100

PATIENT
  Sex: Female
  Weight: 1.69 kg

DRUGS (12)
  1. VIREAD [Suspect]
     Route: 064
     Dates: start: 20091119
  2. ZIAGEN [Concomitant]
     Route: 064
     Dates: end: 20091001
  3. SPASFON [Concomitant]
     Route: 064
     Dates: start: 20100210
  4. RETROVIR [Concomitant]
     Dates: start: 20100406, end: 20100406
  5. AZT [Concomitant]
     Route: 064
     Dates: start: 20100406, end: 20100406
  6. ZIAGEN [Concomitant]
     Dates: start: 20091119
  7. SUSTIVA [Concomitant]
     Route: 064
     Dates: end: 20091001
  8. NORVIR [Concomitant]
     Route: 064
     Dates: start: 20091119
  9. NICARDIPINE HCL [Concomitant]
     Route: 064
     Dates: start: 20100120
  10. VIREAD [Suspect]
     Indication: HIV INFECTION
     Route: 064
     Dates: start: 20050101, end: 20091001
  11. REYATAZ [Concomitant]
     Route: 064
     Dates: start: 20091119
  12. CELESTONE [Concomitant]
     Route: 064

REACTIONS (5)
  - NEONATAL RESPIRATORY DISTRESS SYNDROME [None]
  - VENTRICULAR HYPOPLASIA [None]
  - CARDIOMEGALY [None]
  - CONGENITAL TRICUSPID VALVE ATRESIA [None]
  - CONGENITAL PULMONARY VALVE ATRESIA [None]
